FAERS Safety Report 8545740-8 (Version None)
Quarter: 2012Q3

REPORT INFORMATION
  Report Type: 
  Country: None (occurrence: None)
  Receive Date: 20120727
  Receipt Date: 20120717
  Transmission Date: 20120928
  Serious: Yes (Other)
  Sender: FDA-Public Use
  Company Number: US-MYLANLABS-2012S1014595

PATIENT
  Age: 64 Year
  Sex: Male
  Weight: 83.01 kg

DRUGS (1)
  1. PHENYTOIN SODIUM CAP [Suspect]
     Indication: EPILEPSY
     Route: 048

REACTIONS (4)
  - DRUG INEFFECTIVE [None]
  - DRUG DOSE OMISSION [None]
  - DRUG LEVEL DECREASED [None]
  - GRAND MAL CONVULSION [None]
